FAERS Safety Report 24114518 (Version 1)
Quarter: 2024Q3

REPORT INFORMATION
  Report Type: Spontaneous
  Country: AU (occurrence: AU)
  Receive Date: 20240720
  Receipt Date: 20240720
  Transmission Date: 20241017
  Serious: Yes (Other)
  Sender: SANDOZ
  Company Number: AU-SUN PHARMACEUTICAL INDUSTRIES LTD-2024RR-450114

PATIENT
  Age: 76 Year
  Sex: Male

DRUGS (16)
  1. CARBAMAZEPINE [Suspect]
     Active Substance: CARBAMAZEPINE
     Indication: Dementia Alzheimer^s type
     Dosage: UNK
     Route: 065
  2. CARBAMAZEPINE [Suspect]
     Active Substance: CARBAMAZEPINE
     Indication: Vascular dementia
     Dosage: UNK
     Route: 065
  3. FLUOXETINE [Suspect]
     Active Substance: FLUOXETINE HYDROCHLORIDE
     Indication: Dementia Alzheimer^s type
     Dosage: 20 MILLIGRAM UNKNOWN ROUTE OF ADMIN
     Route: 065
  4. FLUOXETINE [Suspect]
     Active Substance: FLUOXETINE HYDROCHLORIDE
     Indication: Vascular dementia
     Dosage: UNK
     Route: 065
  5. HALOPERIDOL [Suspect]
     Active Substance: HALOPERIDOL
     Indication: Dementia Alzheimer^s type
     Dosage: 5 MILLIGRAM; INTERVAL: 1 DAY
     Route: 065
  6. HALOPERIDOL [Suspect]
     Active Substance: HALOPERIDOL
     Indication: Vascular dementia
     Dosage: UNK
     Route: 065
  7. MEMANTINE HYDROCHLORIDE [Suspect]
     Active Substance: MEMANTINE HYDROCHLORIDE
     Indication: Vascular dementia
     Dosage: 15 MILLIGRAM; INTERVAL: 1 DAY
     Route: 065
  8. MEMANTINE HYDROCHLORIDE [Suspect]
     Active Substance: MEMANTINE HYDROCHLORIDE
     Indication: Dementia Alzheimer^s type
     Dosage: UNK
     Route: 065
  9. PRAZOSIN [Suspect]
     Active Substance: PRAZOSIN
     Indication: Dementia Alzheimer^s type
     Dosage: UNK
     Route: 065
  10. PRAZOSIN [Suspect]
     Active Substance: PRAZOSIN
     Indication: Vascular dementia
  11. QUETIAPINE FUMARATE [Suspect]
     Active Substance: QUETIAPINE FUMARATE
     Indication: Dementia Alzheimer^s type
     Dosage: 400 MILLIGRAM; INTERVAL: 1 DAY;
     Route: 065
  12. QUETIAPINE FUMARATE [Suspect]
     Active Substance: QUETIAPINE FUMARATE
     Indication: Vascular dementia
     Dosage: UNK
     Route: 065
  13. RIVASTIGMINE [Suspect]
     Active Substance: RIVASTIGMINE
     Indication: Dementia Alzheimer^s type
     Dosage: 9.5 MILLIGRAM; INTERVAL: 24 HOUR
     Route: 065
  14. RIVASTIGMINE [Suspect]
     Active Substance: RIVASTIGMINE
     Indication: Vascular dementia
     Dosage: UNK
     Route: 065
  15. VALPROIC ACID [Suspect]
     Active Substance: VALPROIC ACID
     Indication: Vascular dementia
     Dosage: UNK
     Route: 065
  16. VALPROIC ACID [Suspect]
     Active Substance: VALPROIC ACID
     Indication: Dementia Alzheimer^s type

REACTIONS (2)
  - Condition aggravated [Unknown]
  - Therapeutic product effect incomplete [Unknown]
